FAERS Safety Report 4937146-5 (Version None)
Quarter: 2006Q1

REPORT INFORMATION
  Report Type: 
  Country: None (occurrence: None)
  Receive Date: 20060302
  Receipt Date: 20060214
  Transmission Date: 20060701
  Serious: Yes (Life-Threatening, Hospitalization, Other)
  Sender: FDA-Public Use
  Company Number: CA200602001580

PATIENT
  Age: 74 Year
  Sex: Female

DRUGS (7)
  1. FORTEO [Suspect]
     Indication: OSTEOPOROSIS
     Dosage: 20 UG, DAILY (1/D)
     Dates: start: 20050705, end: 20060130
  2. FORTEO [Concomitant]
  3. FUROSEMIDE [Concomitant]
  4. VITAMIN D NOS (VITAMIN D NOS) [Concomitant]
  5. CALCIUM (CALCIUM) [Concomitant]
  6. LEVOTHYROXINE SODIUM [Concomitant]
  7. METOPROLOL (METOPROLOL) [Concomitant]

REACTIONS (15)
  - ANAEMIA [None]
  - ASTERIXIS [None]
  - ASTHENIA [None]
  - ATELECTASIS [None]
  - CARDIAC FAILURE [None]
  - CARDIAC FAILURE CONGESTIVE [None]
  - CARDIAC VALVE DISEASE [None]
  - DECREASED APPETITE [None]
  - DYSPNOEA [None]
  - HELICOBACTER INFECTION [None]
  - HYPOTHYROIDISM [None]
  - MYOCLONUS [None]
  - PNEUMONIA [None]
  - RESPIRATORY FAILURE [None]
  - TACHYCARDIA [None]
